FAERS Safety Report 11686924 (Version 1)
Quarter: 2015Q4

REPORT INFORMATION
  Report Type: Spontaneous
  Country: DE (occurrence: DE)
  Receive Date: 20151030
  Receipt Date: 20151030
  Transmission Date: 20160304
  Serious: Yes (Other)
  Sender: FDA-Public Use
  Company Number: DE-TEVA-603537GER

PATIENT
  Age: 26 Year
  Sex: Female
  Weight: 68 kg

DRUGS (8)
  1. PREDNISOLON [Suspect]
     Active Substance: PREDNISOLONE
     Dosage: 40 MILLIGRAM DAILY;
     Route: 048
     Dates: end: 20150425
  2. HUMINSULIN [Concomitant]
     Indication: GESTATIONAL DIABETES
     Route: 058
     Dates: start: 20150415, end: 20150621
  3. INSUMAN [Concomitant]
     Active Substance: INSULIN HUMAN
     Indication: GESTATIONAL DIABETES
     Route: 058
     Dates: start: 20150415, end: 20150613
  4. PREDNISOLON [Suspect]
     Active Substance: PREDNISOLONE
     Indication: COLITIS ULCERATIVE
     Dosage: 60 MILLIGRAM DAILY;
     Route: 048
     Dates: start: 20150411
  5. EISEN(III)-ION [Concomitant]
     Indication: IRON DEFICIENCY
     Route: 041
     Dates: start: 20150415, end: 20150415
  6. AZATHIOPRINE. [Concomitant]
     Active Substance: AZATHIOPRINE
     Indication: COLITIS ULCERATIVE
     Dosage: 150 MILLIGRAM DAILY;
     Route: 048
     Dates: start: 20141003, end: 20150621
  7. AMOXICILLIN. [Concomitant]
     Active Substance: AMOXICILLIN
     Indication: SKIN INFECTION
     Route: 048
     Dates: start: 20141228, end: 20150107
  8. FOLSAEURE [Concomitant]
     Active Substance: FOLIC ACID
     Indication: PROPHYLAXIS OF NEURAL TUBE DEFECT
     Route: 048
     Dates: start: 20141003, end: 20150504

REACTIONS (2)
  - Normal newborn [Unknown]
  - Gestational diabetes [Recovered/Resolved]
